FAERS Safety Report 6702459-3 (Version None)
Quarter: 2010Q2

REPORT INFORMATION
  Report Type: 
  Country: None (occurrence: None)
  Receive Date: 20100429
  Receipt Date: 20100406
  Transmission Date: 20101027
  Serious: Yes (Death, Life-Threatening)
  Sender: FDA-Public Use
  Company Number: B0644287A

PATIENT
  Age: 64 Year
  Sex: Female
  Weight: 52 kg

DRUGS (23)
  1. LAPATINIB [Suspect]
     Dosage: 1000MG PER DAY
     Route: 048
  2. OXALIPLATIN [Suspect]
     Route: 042
  3. FLUOROURACIL [Suspect]
  4. FOLINIC ACID [Suspect]
  5. CREON [Concomitant]
     Indication: PANCREATIC INSUFFICIENCY
     Dosage: 25000IU PER DAY
     Dates: start: 20091001, end: 20100326
  6. MOXONIDIN [Concomitant]
     Indication: HYPERTENSION
     Dosage: .2MG PER DAY
     Dates: end: 20100326
  7. NEXIUM [Concomitant]
     Indication: GASTRITIS
     Dosage: 20MG PER DAY
  8. METOPROLOL [Concomitant]
     Indication: HYPERTENSION
     Dosage: 18.75MG PER DAY
     Dates: start: 20100315, end: 20100326
  9. METAMIZOL [Concomitant]
     Indication: PAIN
     Dosage: 750MG THREE TIMES PER DAY
     Dates: start: 20100101, end: 20100326
  10. COTRIM [Concomitant]
     Indication: CYSTITIS
     Dates: start: 20100325, end: 20100326
  11. FUROSEMID [Concomitant]
     Indication: PROPHYLAXIS
     Dosage: 20MG PER DAY
     Dates: start: 20100101, end: 20100326
  12. METOPROLOL SUCCINATE [Concomitant]
     Dates: start: 20100317
  13. APSOMOL [Concomitant]
     Indication: ASTHMA
     Dates: start: 20100324
  14. ZOFRAN [Concomitant]
     Indication: NAUSEA
     Dates: start: 20100324
  15. ATOSIL [Concomitant]
     Dosage: 30ML PER DAY
     Dates: start: 20100324
  16. TRAMAL [Concomitant]
     Indication: PAIN
     Dosage: 100ML PER DAY
     Dates: start: 20100324
  17. IBUPROFEN [Concomitant]
     Indication: PAIN
     Dosage: 40MG PER DAY
     Dates: start: 20100317
  18. BETALOC ZOK [Concomitant]
     Dosage: 47.5MG UNKNOWN
     Dates: start: 20100317, end: 20100326
  19. APSOMOL [Concomitant]
     Dosage: 6.7G PER DAY
     Dates: start: 20100324, end: 20100326
  20. ZOFRAN [Concomitant]
     Dosage: 4MG PER DAY
     Dates: start: 20100324, end: 20100326
  21. ATOSIL [Concomitant]
     Dosage: 30ML PER DAY
     Dates: start: 20100324, end: 20100326
  22. TRAMAL [Concomitant]
     Dosage: 100ML UNKNOWN
     Dates: start: 20100324, end: 20100326
  23. IBUPROFEN [Concomitant]
     Dosage: 400MG PER DAY
     Dates: start: 20100317, end: 20100326

REACTIONS (7)
  - ASPHYXIA [None]
  - HEPATIC ENZYME DECREASED [None]
  - HEPATIC FAILURE [None]
  - HYPOGLYCAEMIA [None]
  - LOSS OF CONSCIOUSNESS [None]
  - SEPSIS [None]
  - THROMBOCYTOPENIA [None]
